FAERS Safety Report 9054138 (Version 2)
Quarter: 2013Q4

REPORT INFORMATION
  Report Type: Spontaneous
  Country: US (occurrence: US)
  Receive Date: 20130208
  Receipt Date: 20131119
  Transmission Date: 20140711
  Serious: Yes (Hospitalization)
  Sender: FDA-Public Use
  Company Number: US-VERTEX PHARMACEUTICALS INC.-2013-001744

PATIENT
  Age: 18 Year
  Sex: Female
  Weight: 42.18 kg

DRUGS (13)
  1. KALYDECO [Suspect]
     Indication: CYSTIC FIBROSIS
     Dosage: 150 MG, BID
     Route: 048
  2. HUMALOG [Concomitant]
     Dosage: 100/ML
  3. PROTONIX [Concomitant]
     Dosage: 40 MG, UNK
  4. CREON [Concomitant]
     Dosage: 24000 IU, UNK
  5. TOBI [Concomitant]
     Dosage: 300/5ML
  6. LEVEMIR [Concomitant]
  7. ALBUTEROL [Concomitant]
     Dosage: 90 ?G, UNK
  8. PULMOZYME [Concomitant]
     Dosage: 1MG/1ML
  9. FLONASE [Concomitant]
  10. ADVAIR [Concomitant]
     Dosage: 100/50
  11. SALINE [Concomitant]
  12. FORMULA-D [Concomitant]
  13. SOURCECF PEDIATRIC [Concomitant]

REACTIONS (3)
  - Pneumonia [Recovered/Resolved]
  - Pneumothorax [Recovered/Resolved]
  - Bronchial secretion retention [Recovered/Resolved]
